FAERS Safety Report 5477546-0 (Version None)
Quarter: 2007Q4

REPORT INFORMATION
  Report Type: 
  Country: None (occurrence: None)
  Receive Date: 20071002
  Receipt Date: 20070917
  Transmission Date: 20080405
  Serious: Yes (Death, Other)
  Sender: FDA-Public Use
  Company Number: 2007RR-09421

PATIENT
  Age: 53 Year
  Sex: Male

DRUGS (11)
  1. METRONIDAZOLE [Suspect]
     Indication: ANALGESIA
  2. METRONIDAZOLE [Suspect]
     Indication: INFECTION
  3. AUGMENTIN '125' [Suspect]
     Indication: INFECTION
  4. LEVOFLOXACIN [Suspect]
     Indication: INFECTION
  5. GENTAMICIN [Suspect]
     Indication: INFECTION
  6. ACETAMINOPHEN [Suspect]
     Indication: ANALGESIA
  7. ACETAMINOPHEN [Suspect]
     Indication: INFECTION
  8. VANCOMYCIN [Suspect]
     Indication: INFECTION
  9. DICLOFENAC SODIUM [Suspect]
     Indication: ANALGESIA
  10. METOCLOPRAMIDE [Suspect]
  11. OMEPRAZOLE [Suspect]

REACTIONS (5)
  - DISORIENTATION [None]
  - GENERAL PHYSICAL HEALTH DETERIORATION [None]
  - METABOLIC ACIDOSIS [None]
  - MYOCARDIAL INFARCTION [None]
  - URINE AMINO ACID LEVEL INCREASED [None]
